FAERS Safety Report 6595806-7 (Version None)
Quarter: 2010Q1

REPORT INFORMATION
  Report Type: 
  Country: None (occurrence: None)
  Receive Date: 20100223
  Receipt Date: 20100105
  Transmission Date: 20100710
  Serious: Yes (Death)
  Sender: FDA-Public Use
  Company Number: US-TYCO HEALTHCARE/MALLINCKRODT-T201000514

PATIENT
  Age: 42 Year
  Sex: Female

DRUGS (6)
  1. TRAMADOL HCL [Suspect]
     Dosage: UNK
     Route: 048
  2. CLONAZEPAM [Suspect]
     Dosage: UNK
     Route: 048
  3. ZOLPIDEM [Suspect]
     Dosage: UNK
     Route: 048
  4. CYCLOBENZAPRINE [Suspect]
     Dosage: UNK
     Route: 048
  5. TRAZODONE HCL [Suspect]
     Dosage: UNK
     Route: 048
  6. DULOXETINE HYDROCHLORIDE [Suspect]
     Dosage: UNK
     Route: 048

REACTIONS (1)
  - COMPLETED SUICIDE [None]
